FAERS Safety Report 5527499-1 (Version None)
Quarter: 2007Q4

REPORT INFORMATION
  Report Type: 
  Country: None (occurrence: None)
  Receive Date: 20071121
  Receipt Date: 20071108
  Transmission Date: 20080405
  Serious: Yes (Hospitalization, Other)
  Sender: FDA-Public Use
  Company Number: ALK_00286_2007

PATIENT
  Sex: Male

DRUGS (11)
  1. VIVITROL [Suspect]
  2. REGULAR INSULIN [Concomitant]
  3. HUMULIN /01040301/ (, ) [Concomitant]
  4. TRAZODONE HCL [Concomitant]
  5. AMITRIPTLINE HCL [Concomitant]
  6. REMERON [Concomitant]
  7. ZOLOFT [Concomitant]
  8. LUNESTA [Concomitant]
  9. METFORMIN HCL [Concomitant]
  10. LYRICA [Concomitant]
  11. VITAMIN CAP [Concomitant]

REACTIONS (15)
  - ABDOMINAL PAIN [None]
  - ACUTE RESPIRATORY DISTRESS SYNDROME [None]
  - ANAEMIA [None]
  - ASTHENIA [None]
  - BACTERIAL INFECTION [None]
  - BODY TEMPERATURE INCREASED [None]
  - CONVULSION [None]
  - FUNGAL INFECTION [None]
  - HYPOXIA [None]
  - LIVER FUNCTION TEST ABNORMAL [None]
  - MYOCLONUS [None]
  - OCCULT BLOOD POSITIVE [None]
  - PNEUMONIA [None]
  - PNEUMONIA ASPIRATION [None]
  - WEANING FAILURE [None]
